FAERS Safety Report 14913549 (Version 2)
Quarter: 2018Q2

REPORT INFORMATION
  Report Type: Spontaneous
  Country: US (occurrence: US)
  Receive Date: 20180518
  Receipt Date: 20180525
  Transmission Date: 20180711
  Serious: Yes (Death, Hospitalization)
  Sender: FDA-Public Use
  Company Number: US-UNITED THERAPEUTICS-UNT-2018-007048

PATIENT
  Sex: Female

DRUGS (2)
  1. TYVASO [Suspect]
     Active Substance: TREPROSTINIL
     Indication: PULMONARY ARTERIAL HYPERTENSION
     Dosage: 54 ?G, QID
     Dates: start: 20170324, end: 20180517
  2. REMODULIN [Suspect]
     Active Substance: TREPROSTINIL
     Indication: PULMONARY ARTERIAL HYPERTENSION
     Dosage: 0.012 ?G/KG,CONTINUING AT A FLOW RATE OF 0.012 ML/HR
     Route: 058
     Dates: start: 20180415

REACTIONS (5)
  - Dyspnoea [Unknown]
  - Nausea [Unknown]
  - Death [Fatal]
  - Hypoxia [Unknown]
  - Headache [Unknown]

NARRATIVE: CASE EVENT DATE: 20180517
